FAERS Safety Report 13922723 (Version 1)
Quarter: 2017Q3

REPORT INFORMATION
  Report Type: Spontaneous
  Country: GB (occurrence: GB)
  Receive Date: 20170830
  Receipt Date: 20170830
  Transmission Date: 20171127
  Serious: Yes (Other)
  Sender: FDA-Public Use
  Company Number: GB-GEHC-2017CSU002335

PATIENT

DRUGS (4)
  1. CLOPIDOGREL [Concomitant]
     Active Substance: CLOPIDOGREL BISULFATE
     Indication: ANTIPLATELET THERAPY
     Dosage: 75 MG, QD
  2. ASPIRIN                            /00002701/ [Concomitant]
     Active Substance: ASPIRIN
     Indication: ANTIPLATELET THERAPY
     Dosage: 75 MG, QD
  3. STATIN                             /00036501/ [Concomitant]
     Active Substance: NYSTATIN
  4. OMNIPAQUE [Suspect]
     Active Substance: IOHEXOL
     Indication: ANGINA PECTORIS
     Dosage: 200 ML, SINGLE
     Route: 013

REACTIONS (1)
  - Contrast encephalopathy [Recovered/Resolved]
